FAERS Safety Report 7711866-1 (Version None)
Quarter: 2011Q3

REPORT INFORMATION
  Report Type: 
  Country: None (occurrence: None)
  Receive Date: 20110826
  Receipt Date: 20100916
  Transmission Date: 20111222
  Serious: No
  Sender: FDA-Public Use
  Company Number: US-BAYER-201034149NA

PATIENT
  Age: 69 Year
  Sex: Female

DRUGS (6)
  1. CIPROFLOXACIN [Suspect]
     Indication: TOOTH ABSCESS
     Dosage: UNK UNK, QD
     Route: 048
     Dates: start: 20100201, end: 20100201
  2. METOPROLOL [Concomitant]
  3. SIMAVASTATIN [Concomitant]
  4. AMOXICILLIN [Suspect]
     Indication: INFECTION PROPHYLAXIS
     Dosage: 4 DF, ONCE
     Dates: start: 20100201, end: 20100201
  5. TRIAMTERENE [Concomitant]
  6. KLOR-CON [Suspect]
     Indication: BLOOD POTASSIUM DECREASED
     Dosage: 20 MEQ, BID
     Route: 048
     Dates: start: 20090801

REACTIONS (1)
  - CANDIDIASIS [None]
